FAERS Safety Report 6307511-2 (Version None)
Quarter: 2009Q3

REPORT INFORMATION
  Report Type: 
  Country: None (occurrence: None)
  Receive Date: 20090813
  Receipt Date: 20090807
  Transmission Date: 20100115
  Serious: Yes (Death, Other)
  Sender: FDA-Public Use
  Company Number: US-BRISTOL-MYERS SQUIBB COMPANY-14737407

PATIENT

DRUGS (1)
  1. DEFINITY [Suspect]

REACTIONS (3)
  - DEATH [None]
  - PRURITUS [None]
  - URTICARIA [None]
